FAERS Safety Report 10218999 (Version 1)
Quarter: 2014Q2

REPORT INFORMATION
  Report Type: Spontaneous
  Country: US (occurrence: US)
  Receive Date: 20140605
  Receipt Date: 20140605
  Transmission Date: 20141212
  Serious: Yes (Other)
  Sender: FDA-Public Use
  Company Number: US-JNJFOC-20140518613

PATIENT
  Age: 67 Year
  Sex: Male
  Weight: 116.12 kg

DRUGS (9)
  1. INVOKANA [Suspect]
     Indication: TYPE 2 DIABETES MELLITUS
     Route: 048
     Dates: start: 20140523
  2. INVOKANA [Suspect]
     Indication: TYPE 2 DIABETES MELLITUS
     Route: 048
     Dates: start: 201401, end: 20140523
  3. NOVOLOG [Concomitant]
     Indication: TYPE 2 DIABETES MELLITUS
     Route: 058
  4. VITAMIN [Concomitant]
     Indication: GENERAL PHYSICAL CONDITION
     Route: 048
  5. METFORMIN [Concomitant]
     Indication: TYPE 2 DIABETES MELLITUS
     Route: 048
  6. CO-Q10 [Concomitant]
     Indication: GENERAL PHYSICAL CONDITION
     Route: 048
  7. LISINOPRIL [Concomitant]
     Indication: BLOOD PRESSURE
     Route: 048
  8. ZOCOR [Concomitant]
     Indication: BLOOD CHOLESTEROL
     Route: 048
  9. LANTUS [Concomitant]
     Indication: TYPE 2 DIABETES MELLITUS
     Route: 058
     Dates: end: 2014

REACTIONS (7)
  - Weight decreased [Not Recovered/Not Resolved]
  - Hypotension [Recovered/Resolved]
  - Incorrect dose administered [Not Recovered/Not Resolved]
  - Inappropriate schedule of drug administration [Not Recovered/Not Resolved]
  - Dizziness [Not Recovered/Not Resolved]
  - Off label use [Not Recovered/Not Resolved]
  - Presyncope [Not Recovered/Not Resolved]
